FAERS Safety Report 20436680 (Version 1)
Quarter: 2022Q1

REPORT INFORMATION
  Report Type: Report from Study
  Country: CN (occurrence: CN)
  Receive Date: 20220207
  Receipt Date: 20220207
  Transmission Date: 20220423
  Serious: Yes (Hospitalization)
  Sender: FDA-Public Use
  Company Number: CN-BRISTOL-MYERS SQUIBB COMPANY-BMS-2021-115316

PATIENT
  Age: 66 Year
  Sex: Male

DRUGS (1)
  1. NIVOLUMAB [Suspect]
     Active Substance: NIVOLUMAB
     Indication: Non-small cell lung cancer
     Dosage: 180 MILLIGRAM, Q2WK
     Route: 041
     Dates: start: 20190314

REACTIONS (2)
  - Hypoalbuminaemia [Unknown]
  - Erythropenia [Unknown]

NARRATIVE: CASE EVENT DATE: 20220101
